FAERS Safety Report 5622639-8 (Version None)
Quarter: 2008Q1

REPORT INFORMATION
  Report Type: 
  Country: None (occurrence: None)
  Receive Date: 20080211
  Receipt Date: 20080211
  Transmission Date: 20080703
  Serious: Yes (Hospitalization)
  Sender: FDA-Public Use
  Company Number: None

PATIENT
  Age: 53 Year
  Sex: Male

DRUGS (2)
  1. METOLAZONE [Suspect]
     Dosage: 2.5MG  EVERY DAY  PO
     Route: 048
     Dates: start: 20070925, end: 20071105
  2. FUROSEMIDE [Suspect]
     Dosage: 80MG EVERY DAY PO
     Route: 048
     Dates: start: 20030101, end: 20071105

REACTIONS (2)
  - CONFUSIONAL STATE [None]
  - HYPOKALAEMIA [None]
